FAERS Safety Report 5268272-1 (Version None)
Quarter: 2007Q1

REPORT INFORMATION
  Report Type: 
  Country: None (occurrence: None)
  Receive Date: 20070314
  Receipt Date: 20070314
  Transmission Date: 20070707
  Serious: Yes (Hospitalization, Disabling, Other)
  Sender: FDA-Public Use
  Company Number: None

PATIENT
  Age: 3 Day
  Sex: Male

DRUGS (2)
  1. FLUOXETINE [Suspect]
     Indication: DEPRESSION
     Dosage: 10 MG 1 DAILY PO
     Route: 048
     Dates: start: 20040401, end: 20040423
  2. FLUOXETINE [Suspect]
     Indication: PREGNANCY
     Dosage: 10 MG 1 DAILY PO
     Route: 048
     Dates: start: 20040401, end: 20040423

REACTIONS (4)
  - CONVULSION NEONATAL [None]
  - DRUG EXPOSURE DURING PREGNANCY [None]
  - FEEDING DISORDER NEONATAL [None]
  - WEIGHT DECREASED [None]
